FAERS Safety Report 17912327 (Version 2)
Quarter: 2020Q4

REPORT INFORMATION
  Report Type: Spontaneous
  Country: US (occurrence: US)
  Receive Date: 20200618
  Receipt Date: 20201022
  Transmission Date: 20210113
  Serious: No
  Sender: FDA-Public Use
  Company Number: US-SA-2020SA152251

PATIENT

DRUGS (6)
  1. METHYLPRED [Concomitant]
     Active Substance: METHYLPREDNISOLONE
  2. OSELTAMIVIR [Concomitant]
     Active Substance: OSELTAMIVIR
  3. DUPIXENT [Suspect]
     Active Substance: DUPILUMAB
     Indication: DERMATITIS ATOPIC
     Dosage: 300 MG, QOW
     Route: 058
     Dates: start: 20200402
  4. PREDNISONE. [Concomitant]
     Active Substance: PREDNISONE
  5. PREDNISOLONE. [Concomitant]
     Active Substance: PREDNISOLONE
  6. PROAIR HFA [Concomitant]
     Active Substance: ALBUTEROL SULFATE

REACTIONS (1)
  - Ocular hyperaemia [Not Recovered/Not Resolved]

NARRATIVE: CASE EVENT DATE: 202004
